FAERS Safety Report 5130564-4 (Version None)
Quarter: 2006Q4

REPORT INFORMATION
  Report Type: 
  Country: None (occurrence: None)
  Receive Date: 20061017
  Receipt Date: 20061017
  Transmission Date: 20070319
  Serious: Yes (Hospitalization, Other)
  Sender: FDA-Public Use
  Company Number: None

PATIENT
  Age: 40 Year
  Sex: Female

DRUGS (1)
  1. FENTANYL [Suspect]
     Indication: PROCEDURAL PAIN
     Dosage: 150 MCG IV
     Route: 042
     Dates: start: 20060628, end: 20060628

REACTIONS (2)
  - HAEMORRHAGE [None]
  - HYPOTENSION [None]
